FAERS Safety Report 25658930 (Version 2)
Quarter: 2025Q4

REPORT INFORMATION
  Report Type: Report from Study
  Country: US (occurrence: None)
  Receive Date: 20250808
  Receipt Date: 20251016
  Transmission Date: 20260117
  Serious: Yes (Other)
  Sender: UCB
  Company Number: US-UCBSA-2024053147

PATIENT
  Age: 14 Year

DRUGS (20)
  1. FENFLURAMINE [Suspect]
     Active Substance: FENFLURAMINE
     Indication: Lennox-Gastaut syndrome
     Dosage: UNK
  2. FENFLURAMINE [Suspect]
     Active Substance: FENFLURAMINE
     Dosage: 5.9 MILLILITER, 2X/DAY (BID)
  3. FENFLURAMINE [Suspect]
     Active Substance: FENFLURAMINE
     Dosage: 5.9 MILLILITER, 2X/DAY (BID)
  4. FENFLURAMINE [Suspect]
     Active Substance: FENFLURAMINE
     Dosage: 5.9 MILLILITER, 2X/DAY (BID)
  5. FENFLURAMINE [Suspect]
     Active Substance: FENFLURAMINE
     Dosage: 5.9 MILLILITER, 2X/DAY (BID)
  6. TYLENOL [Concomitant]
     Active Substance: ACETAMINOPHEN
     Indication: Pain
     Dosage: 16.2 MILLILITER, 4X/DAY (QID) AS NEEDED
  7. ADVIL [Concomitant]
     Active Substance: IBUPROFEN
     Indication: Pain
     Dosage: 18 MILLILITER, 4X/DAY (QID) AS NEEDED
  8. MIRALAX [Concomitant]
     Active Substance: POLYETHYLENE GLYCOL 3350
     Indication: Constipation
     Dosage: 17 G BY MOUTH DAILY AS NEEDED
  9. ONFI [Concomitant]
     Active Substance: CLOBAZAM
     Indication: Product used for unknown indication
     Dosage: 20 MILLIGRAM, 2X/DAY (BID)
  10. PERIACTIN [Concomitant]
     Active Substance: CYPROHEPTADINE HYDROCHLORIDE
     Indication: Decreased appetite
     Dosage: 4 MILLIGRAM, 2X/DAY (BID)
  11. VALTOCO [Concomitant]
     Active Substance: DIAZEPAM
     Indication: Product used for unknown indication
     Dosage: 2 SPRAYS IN NOSTRIL(S) DAILY AS NEEDED
  12. ERGOCALCIFEROL [Concomitant]
     Active Substance: ERGOCALCIFEROL
     Indication: Product used for unknown indication
     Dosage: AKE 1 CAPSULE (50,000 UNITS TOTAL) BY MOUTH ONCE A WEEK USE AS INSTRUCTED
  13. FELBATOL [Concomitant]
     Active Substance: FELBAMATE
     Indication: Product used for unknown indication
     Dosage: 1.5 TABLETS (600 MG TOTAL) BY MOUTH EVERY MORNING, AFTERNOON, AND EVENING.
  14. VIMPAT [Concomitant]
     Active Substance: LACOSAMIDE
     Indication: Product used for unknown indication
     Dosage: TAKE 2.5 TABLETS (250 MG TOTAL) BY MOUTH IN THE MORNING AND 2.5 TABLETS (250 MG TOTAL) IN THE EVENING.
  15. ATIVAN [Concomitant]
     Active Substance: LORAZEPAM
     Indication: Product used for unknown indication
     Dosage: AKE 2 TABLETS (2 MG TOTAL) BY MOUTH DAILY AS NEEDED (NON CONVULSIVE SEIZURE LASTING MORE THAN 3 MINUTES)
  16. MELATONIN [Concomitant]
     Active Substance: MELATONIN
     Indication: Product used for unknown indication
     Dosage: 3 MILLIGRAM, ONCE DAILY (QD)
  17. NAYZIL [Concomitant]
     Indication: Product used for unknown indication
     Dosage: USE 2 SPRAYS IN NOSTRIL(S) ONCE AS NEEDED (SEIZURE LASING MORE THAN 10 MINUTES) FOR UP TO 1 DOSE - NASAL
  18. NARCAN [Concomitant]
     Active Substance: NALOXONE HYDROCHLORIDE
     Indication: Product used for unknown indication
     Dosage: SE 1 SPRAY IN NOSTRIL(S) ONCE AS NEEDED FOR SUSPECTED OVERDOSE FOR UP TO 1 DOSE.
  19. ZOFRAN-ODT [Concomitant]
     Indication: Nausea
     Dosage: DISSOLVE 1 TABLET (4 MG TOTAL) IN THE MOUTH EVERY 8 (EIGHT) HOURS AS NEEDED FOR NAUSE
  20. ROXICODONE [Concomitant]
     Active Substance: OXYCODONE HYDROCHLORIDE
     Indication: Pain
     Dosage: 0.5 TABLETS (2.5 MG TOTAL) BY MOUTH EVERY 8 (EIGHT) HOURS AS NEEDED

REACTIONS (8)
  - Tonic convulsion [Unknown]
  - Aggression [Not Recovered/Not Resolved]
  - Vomiting [Recovered/Resolved]
  - Gastroenteritis viral [Recovered/Resolved]
  - Paranasal sinus mucosal hypertrophy [Unknown]
  - Decreased appetite [Not Recovered/Not Resolved]
  - Weight decreased [Not Recovered/Not Resolved]
  - Nasopharyngitis [Not Recovered/Not Resolved]
